FAERS Safety Report 8602022-3 (Version None)
Quarter: 2012Q3

REPORT INFORMATION
  Report Type: 
  Country: None (occurrence: None)
  Receive Date: 20120817
  Receipt Date: 20120812
  Transmission Date: 20120928
  Serious: Yes (Hospitalization)
  Sender: FDA-Public Use
  Company Number: AU-PFIZER INC-2012196340

PATIENT
  Sex: Male

DRUGS (1)
  1. EFFEXOR XR [Suspect]
     Indication: ANXIETY
     Dosage: UNK
     Dates: end: 20110101

REACTIONS (4)
  - DEPRESSION [None]
  - PRODUCT QUALITY ISSUE [None]
  - POST-TRAUMATIC STRESS DISORDER [None]
  - WITHDRAWAL SYNDROME [None]
